FAERS Safety Report 11289231 (Version 8)
Quarter: 2015Q4

REPORT INFORMATION
  Report Type: Spontaneous
  Country: HU (occurrence: HU)
  Receive Date: 20150721
  Receipt Date: 20151228
  Transmission Date: 20160304
  Serious: Yes (Death, Hospitalization)
  Sender: FDA-Public Use
  Company Number: HU-PFIZER INC-2015230286

PATIENT
  Age: 66 Year
  Sex: Female

DRUGS (15)
  1. VOLTAREN [Concomitant]
     Active Substance: DICLOFENAC SODIUM
     Dosage: 75 MG, 2X/DAY
  2. CHINOTAL [Concomitant]
     Active Substance: PENTOXIFYLLINE
     Dosage: 1-1-1
  3. SUTENT [Suspect]
     Active Substance: SUNITINIB MALATE
     Indication: RENAL CANCER
     Dosage: 50 MG ONCE 1X/DAY, CYCLIC, (1ST CYCLE)
     Route: 048
     Dates: start: 20150618, end: 20150707
  4. SUTENT [Suspect]
     Active Substance: SUNITINIB MALATE
     Dosage: 50 MG, 1X/DAY
     Route: 048
     Dates: start: 20150720, end: 20150804
  5. MIRAPEXIN [Concomitant]
     Active Substance: PRAMIPEXOLE
     Dosage: 0.18 G, UNK
  6. CLOPIDOGREL [Concomitant]
     Active Substance: CLOPIDOGREL BISULFATE
     Dosage: 1-0-0
  7. ROXERA [Concomitant]
     Dosage: 1-0-0
  8. ANAFRANIL [Concomitant]
     Active Substance: CLOMIPRAMINE HYDROCHLORIDE
     Dosage: 25 G, 1-0-1
  9. PRAMIPEXOL [Concomitant]
     Active Substance: PRAMIPEXOLE
     Dosage: 0.7 MG 1/2-0-0
  10. ASPIRIN. [Concomitant]
     Active Substance: ASPIRIN
     Dosage: 100 G, UNK
  11. LETROX [Concomitant]
     Dosage: 1/2-0-0
  12. TALLITON [Concomitant]
     Dosage: 1-0-1
  13. TANYDON [Concomitant]
     Dosage: 1-0-0
  14. XANAX [Concomitant]
     Active Substance: ALPRAZOLAM
     Dosage: 0.25 MG, 0-1-1
  15. MILURIT [Concomitant]
     Active Substance: ALLOPURINOL
     Dosage: 300 MG, 1-0-0

REACTIONS (7)
  - Diarrhoea [Recovered/Resolved]
  - Dysphonia [Not Recovered/Not Resolved]
  - Aphasia [Recovered/Resolved]
  - Fatigue [Not Recovered/Not Resolved]
  - Asthenia [Not Recovered/Not Resolved]
  - Stomatitis [Not Recovered/Not Resolved]
  - Death [Fatal]

NARRATIVE: CASE EVENT DATE: 20150628
